FAERS Safety Report 17463488 (Version 1)
Quarter: 2020Q1

REPORT INFORMATION
  Report Type: Spontaneous
  Country: FR (occurrence: FR)
  Receive Date: 20200226
  Receipt Date: 20200226
  Transmission Date: 20200409
  Serious: Yes (Other)
  Sender: FDA-Public Use
  Company Number: FR-SUN PHARMACEUTICAL INDUSTRIES LTD-2020RR-238141

PATIENT
  Age: 65 Year
  Sex: Female
  Weight: 60 kg

DRUGS (1)
  1. QUETIAPINE. [Suspect]
     Active Substance: QUETIAPINE
     Indication: DEPRESSION
     Dosage: IN TOTAL
     Route: 048
     Dates: start: 20200118

REACTIONS (6)
  - Dizziness [Recovered/Resolved]
  - Dry mouth [Recovered/Resolved]
  - Somnolence [Recovered/Resolved]
  - Paraesthesia [Recovered/Resolved]
  - Duplicate therapy error [Recovered/Resolved]
  - Medication error [Recovered/Resolved]

NARRATIVE: CASE EVENT DATE: 20200118
